FAERS Safety Report 7088732-0 (Version None)
Quarter: 2010Q4

REPORT INFORMATION
  Report Type: 
  Country: None (occurrence: None)
  Receive Date: 20101028
  Receipt Date: 20101015
  Transmission Date: 20110411
  Serious: Yes (Other)
  Sender: FDA-Public Use
  Company Number: COL_02841_2010

PATIENT
  Sex: Female

DRUGS (2)
  1. COLGATE [Suspect]
     Indication: DENTAL CARIES
     Dosage: (1 DF QD, [COVERED HALF OF THE TOOTHBRUSH HEAD WITH TOOTHPASTE] ORAL)
     Route: 048
     Dates: start: 20100924, end: 20100927
  2. COLGATE [Suspect]
     Indication: SENSITIVITY OF TEETH
     Dosage: (1 DF QD, [COVERED HALF OF THE TOOTHBRUSH HEAD WITH TOOTHPASTE] ORAL)
     Route: 048
     Dates: start: 20100924, end: 20100927

REACTIONS (8)
  - BURNING SENSATION [None]
  - EAR PAIN [None]
  - LOCAL SWELLING [None]
  - NECK PAIN [None]
  - PHARYNGEAL OEDEMA [None]
  - SWOLLEN TONGUE [None]
  - THROAT IRRITATION [None]
  - THROAT TIGHTNESS [None]
